FAERS Safety Report 15003291 (Version 1)
Quarter: 2018Q2

REPORT INFORMATION
  Report Type: Report from Study
  Country: ES (occurrence: ES)
  Receive Date: 20180613
  Receipt Date: 20180613
  Transmission Date: 20180711
  Serious: Yes (Hospitalization)
  Sender: FDA-Public Use
  Company Number: ES-ROCHE-2121900

PATIENT
  Age: 69 Year
  Sex: Female

DRUGS (2)
  1. VISMODEGIB. [Suspect]
     Active Substance: VISMODEGIB
     Indication: BREAST CANCER
     Dosage: LAST DOSE OF TREATMENT PRIOR TO ADVERSE EVENT WAS ADMINISTERED ON 19/APR/2018.
     Route: 048
     Dates: start: 20180405, end: 20180524
  2. PACLITAXEL. [Suspect]
     Active Substance: PACLITAXEL
     Indication: PRODUCT USED FOR UNKNOWN INDICATION
     Dosage: LAST DOSE OF TREATMENT PRIOR TO ADVERSE EVENT WAS ADMINISTERED ON 19/APR/2018.
     Route: 042
     Dates: start: 20180405, end: 20180524

REACTIONS (4)
  - Vomiting [Unknown]
  - Diarrhoea [Not Recovered/Not Resolved]
  - Clostridium difficile infection [Unknown]
  - Pneumococcal infection [Unknown]

NARRATIVE: CASE EVENT DATE: 20180418
